FAERS Safety Report 7126028-9 (Version None)
Quarter: 2010Q4

REPORT INFORMATION
  Report Type: 
  Country: None (occurrence: None)
  Receive Date: 20101129
  Receipt Date: 20101117
  Transmission Date: 20110411
  Serious: Yes (Hospitalization)
  Sender: FDA-Public Use
  Company Number: CZ-JNJFOC-20101100538

PATIENT
  Sex: Female

DRUGS (3)
  1. SPORANOX [Suspect]
     Indication: TINEA INFECTION
     Route: 065
  2. LATANOPROST [Concomitant]
     Indication: GLAUCOMA
     Route: 065
  3. SERETIDE DISKUS [Concomitant]
     Indication: ASTHMA
     Route: 065

REACTIONS (2)
  - HYPOACUSIS [None]
  - TINNITUS [None]
